FAERS Safety Report 4594159-3 (Version None)
Quarter: 2005Q1

REPORT INFORMATION
  Report Type: 
  Country: None (occurrence: None)
  Receive Date: 20050301
  Receipt Date: 20050228
  Transmission Date: 20050727
  Serious: Yes (Other)
  Sender: FDA-Public Use
  Company Number: US-GLAXOSMITHKLINE-A0547588A

PATIENT
  Sex: Male

DRUGS (2)
  1. ANCEF [Suspect]
     Indication: PROPHYLAXIS
     Route: 037
  2. CONCURRENT MEDICATIONS [Concomitant]

REACTIONS (2)
  - DISCOMFORT [None]
  - MENINGITIS [None]
